FAERS Safety Report 4830117-9 (Version None)
Quarter: 2005Q4

REPORT INFORMATION
  Report Type: 
  Country: None (occurrence: None)
  Receive Date: 20051114
  Receipt Date: 20051103
  Transmission Date: 20060501
  Serious: Yes (Life-Threatening, Hospitalization)
  Sender: FDA-Public Use
  Company Number: DE_051117449

PATIENT
  Age: 58 Year
  Sex: Male

DRUGS (2)
  1. ZYPREXA [Suspect]
     Indication: BIPOLAR DISORDER
     Dosage: 10 MG DAY
     Dates: start: 20051020, end: 20051024
  2. AKINETON (RIPERIDEN HYDROCHLORIDE) [Concomitant]

REACTIONS (4)
  - ANURIA [None]
  - CATATONIA [None]
  - CHILLS [None]
  - NEUROLEPTIC MALIGNANT SYNDROME [None]
